FAERS Safety Report 4627414-9 (Version None)
Quarter: 2005Q2

REPORT INFORMATION
  Report Type: 
  Country: None (occurrence: None)
  Receive Date: 20050405
  Receipt Date: 20050324
  Transmission Date: 20051028
  Serious: Yes (Hospitalization, Other)
  Sender: FDA-Public Use
  Company Number: 2005049658

PATIENT
  Age: 42 Year
  Sex: Male
  Weight: 117.9352 kg

DRUGS (7)
  1. NEURONTIN [Suspect]
     Indication: NEUROPATHY
     Dosage: ORAL
     Route: 048
  2. ONDANSETRON HCL [Concomitant]
  3. MIRTAZAPINE (MIRTGAZAPINE) [Concomitant]
  4. CHLORODIAZEPOXIDE (CHLORDIAZEPOXIDE) [Concomitant]
  5. CITALOPRAM HYDROBROMIDE [Concomitant]
  6. FAMOTIDINE [Concomitant]
  7. QUETIAPINE FUMARATE [Concomitant]

REACTIONS (5)
  - DIABETIC KETOACIDOSIS [None]
  - DRUG HYPERSENSITIVITY [None]
  - INSOMNIA [None]
  - SUICIDAL IDEATION [None]
  - WHITE BLOOD CELL COUNT DECREASED [None]
